FAERS Safety Report 25137626 (Version 1)
Quarter: 2025Q1

REPORT INFORMATION
  Report Type: Report from Study
  Country: US (occurrence: US)
  Receive Date: 20250329
  Receipt Date: 20250329
  Transmission Date: 20250409
  Serious: Yes (Other)
  Sender: ABBVIE
  Company Number: US-ABBVIE-5968692

PATIENT
  Age: 74 Year
  Sex: Female

DRUGS (1)
  1. HUMIRA [Suspect]
     Active Substance: ADALIMUMAB
     Indication: Product used for unknown indication
     Dosage: CITRATE FREE
     Route: 058
     Dates: start: 20241003

REACTIONS (4)
  - Renal failure [Unknown]
  - Carotene increased [Unknown]
  - Diplopia [Not Recovered/Not Resolved]
  - Bell^s palsy [Recovered/Resolved]

NARRATIVE: CASE EVENT DATE: 20241001
